FAERS Safety Report 15894913 (Version 1)
Quarter: 2019Q1

REPORT INFORMATION
  Report Type: Spontaneous
  Country: US (occurrence: US)
  Receive Date: 20190131
  Receipt Date: 20190131
  Transmission Date: 20190417
  Serious: No
  Sender: FDA-Public Use
  Company Number: None

PATIENT
  Age: 11 Month
  Sex: Female
  Weight: 8.4 kg

DRUGS (1)
  1. UP AND UP DYE FREE INFANTS CONCENTRATED IBUPROFEN [Suspect]
     Active Substance: IBUPROFEN
     Indication: TEETHING
     Dosage: ?          QUANTITY:1.875 ML;?
     Route: 048
     Dates: start: 20190129, end: 20190130

REACTIONS (2)
  - Infantile vomiting [None]
  - Recalled product [None]

NARRATIVE: CASE EVENT DATE: 20190129
